FAERS Safety Report 6345113-2 (Version None)
Quarter: 2009Q3

REPORT INFORMATION
  Report Type: 
  Country: None (occurrence: None)
  Receive Date: 20090909
  Receipt Date: 20090831
  Transmission Date: 20100115
  Serious: Yes (Death, Hospitalization)
  Sender: FDA-Public Use
  Company Number: DE-CELGENEUS-062-C5013-09081770

PATIENT
  Sex: Male
  Weight: 84 kg

DRUGS (10)
  1. CC-5013 [Suspect]
     Route: 048
     Dates: start: 20090428
  2. EUTHYROX [Concomitant]
     Indication: HYPOTHYROIDISM
     Route: 048
     Dates: start: 19960101, end: 20090810
  3. PANTOZOL [Concomitant]
     Route: 048
     Dates: start: 20090416, end: 20090818
  4. ALLOPURINOL [Concomitant]
     Indication: PROPHYLAXIS
     Route: 048
     Dates: start: 20090424, end: 20090816
  5. DECORTIN [Concomitant]
     Route: 048
     Dates: start: 20090418, end: 20090818
  6. CALCIMAGON [Concomitant]
     Route: 048
     Dates: start: 20090505, end: 20090810
  7. ALDACTONE [Concomitant]
     Route: 048
     Dates: start: 20090602, end: 20090818
  8. ALDACTONE [Concomitant]
     Indication: ASCITES
  9. CEFAZOLIN [Concomitant]
     Indication: INFECTION
     Route: 051
     Dates: start: 20090822, end: 20090823
  10. CLEXANE [Concomitant]
     Indication: THROMBOSIS PROPHYLAXIS
     Route: 058
     Dates: start: 20090817, end: 20090822

REACTIONS (3)
  - BRONCHOPULMONARY ASPERGILLOSIS [None]
  - SEPSIS [None]
  - URINARY TRACT INFECTION [None]
